FAERS Safety Report 6462184-3 (Version None)
Quarter: 2009Q4

REPORT INFORMATION
  Report Type: 
  Country: None (occurrence: None)
  Receive Date: 20091124
  Receipt Date: 20091116
  Transmission Date: 20100525
  Serious: Yes (Disabling)
  Sender: FDA-Public Use
  Company Number: 433466

PATIENT
  Sex: Male

DRUGS (2)
  1. MARCAINE 0.50% WITH EPINEPHRINE INJ. (BUPIVACAINE) [Suspect]
     Indication: ANAESTHESIA
     Dosage: 100 ML, INJECTION
     Dates: start: 20031101
  2. SENSORCAINE [Suspect]
     Indication: ANAESTHESIA
     Dosage: 100 ML, INJECTION
     Dates: start: 20031101

REACTIONS (5)
  - ACTIVITIES OF DAILY LIVING IMPAIRED [None]
  - ARTHROPATHY [None]
  - CHONDROLYSIS [None]
  - MEDICAL DEVICE COMPLICATION [None]
  - OFF LABEL USE [None]
